FAERS Safety Report 24172892 (Version 1)
Quarter: 2024Q3

REPORT INFORMATION
  Report Type: Spontaneous
  Country: ES (occurrence: ES)
  Receive Date: 20240805
  Receipt Date: 20240805
  Transmission Date: 20241017
  Serious: Yes (Other)
  Sender: BOEHRINGER INGELHEIM
  Company Number: None

PATIENT
  Age: 83 Year
  Sex: Female
  Weight: 86 kg

DRUGS (13)
  1. JARDIANCE [Suspect]
     Active Substance: EMPAGLIFLOZIN
     Indication: Type 2 diabetes mellitus
     Route: 048
     Dates: start: 20240424, end: 20240717
  2. ESPIRONOLACTONA ALTER 25 mg COMPRIMIDOS RECUBIERTOS EFG, 50 comprimido [Concomitant]
     Indication: Atrial fibrillation
     Dosage: BREAKFAST
     Route: 048
     Dates: start: 20210831
  3. OMEPRAZOL CINFAMED 20 mg CAPSULAS DURAS GASTRORESISTENTES EFG , 56 c?p [Concomitant]
     Indication: Epistaxis
     Dosage: BEFORE BREAKFAST
     Route: 048
     Dates: start: 20221201
  4. PARACETAMOL CINFA 1 g COMPRIMIDOS EFG , 40 comprimidos [Concomitant]
     Indication: Osteoarthritis
     Dosage: BREAKFAST-LUNCH-DINNER
     Route: 048
     Dates: start: 20210817
  5. ATORVASTATIN [Concomitant]
     Active Substance: ATORVASTATIN
     Indication: Type IIa hyperlipidaemia
     Dosage: DINNER
     Route: 048
     Dates: start: 20230920
  6. LINAGLIPTIN [Concomitant]
     Active Substance: LINAGLIPTIN
     Indication: Type 2 diabetes mellitus
     Route: 048
     Dates: start: 20230103
  7. TIRODRIL 5mg COMPRIMIDOS , 40 comprimidos [Concomitant]
     Indication: Hyperthyroidism
     Dosage: BREAKFAST
     Route: 048
     Dates: start: 20230102
  8. APIXABAN TEVAGEN 2,5 MG COMPRIMIDOS RECUBIERTOS CON PELICULA EFG, 60 c [Concomitant]
     Indication: Atrial fibrillation
     Route: 048
     Dates: start: 20220715
  9. FUROSEMIDA CINFA 40 mg COMPRIMIDOS EFG, 30 comprimidos [Concomitant]
     Indication: Product used for unknown indication
     Dosage: BREAKFAST
     Route: 048
     Dates: start: 20180425
  10. HALOPERIDOL [Concomitant]
     Active Substance: HALOPERIDOL
     Indication: Schizophrenia
     Dosage: BREAKFAST-DINNER
     Route: 048
     Dates: start: 20200122
  11. CALCIFEDIOL [Concomitant]
     Active Substance: CALCIFEDIOL
     Indication: Nephropathy
     Route: 048
     Dates: start: 20180626
  12. LANTUS SOLOSTAR 100 UNIDADES/ML SOLUCION INYECTABLE EN PLUMA PRECARGAD [Concomitant]
     Indication: Type 2 diabetes mellitus
     Route: 058
     Dates: start: 20220708
  13. BISOPROLOL FUMARATE [Concomitant]
     Active Substance: BISOPROLOL FUMARATE
     Indication: Atrial fibrillation
     Dosage: BREAKFAST
     Route: 048
     Dates: start: 20221201

REACTIONS (2)
  - Infection [Not Recovered/Not Resolved]
  - Urinary tract infection [Not Recovered/Not Resolved]

NARRATIVE: CASE EVENT DATE: 20240424
